FAERS Safety Report 18232466 (Version 1)
Quarter: 2020Q3

REPORT INFORMATION
  Report Type: Spontaneous
  Country: US (occurrence: US)
  Receive Date: 20200904
  Receipt Date: 20200904
  Transmission Date: 20201103
  Serious: Yes (Other)
  Sender: FDA-Public Use
  Company Number: None

PATIENT
  Age: 17 Year
  Sex: Female
  Weight: 79.7 kg

DRUGS (7)
  1. DIPHENHYDRAMINE 25MG [Concomitant]
     Active Substance: DIPHENHYDRAMINE
  2. IBUPROFEN 200MG [Concomitant]
     Active Substance: IBUPROFEN
  3. SOLU?MEDROL 20MG [Concomitant]
  4. ACETAMINOPHEN 325MG [Concomitant]
  5. SODIUM CHLORIDE 250ML [Concomitant]
  6. LORATADINE 10MG [Concomitant]
     Active Substance: LORATADINE
  7. GAMUNEX [Suspect]
     Active Substance: HUMAN IMMUNOGLOBULIN G
     Indication: CHRONIC INFLAMMATORY DEMYELINATING POLYRADICULONEUROPATHY
     Route: 042
     Dates: start: 20200903, end: 20200903

REACTIONS (3)
  - Chest pain [None]
  - Peripheral swelling [None]
  - Dyspnoea [None]

NARRATIVE: CASE EVENT DATE: 20200904
